FAERS Safety Report 4855717-1 (Version None)
Quarter: 2005Q4

REPORT INFORMATION
  Report Type: 
  Country: None (occurrence: None)
  Receive Date: 20051216
  Receipt Date: 20051205
  Transmission Date: 20060501
  Serious: Yes (Other)
  Sender: FDA-Public Use
  Company Number: AR-ROCHE-427255

PATIENT
  Age: 68 Year
  Sex: Female

DRUGS (1)
  1. XELODA [Suspect]
     Indication: COLON CANCER
     Dosage: STRENGTH REPORTED AS 250/500 MG.
     Route: 048
     Dates: start: 20050707, end: 20051201

REACTIONS (1)
  - GASTROINTESTINAL PERFORATION [None]
